FAERS Safety Report 25699477 (Version 1)
Quarter: 2025Q3

REPORT INFORMATION
  Report Type: Spontaneous
  Country: US (occurrence: None)
  Receive Date: 20250818
  Receipt Date: 20250818
  Transmission Date: 20251021
  Serious: Yes (Death)
  Sender: FDA-CTU
  Company Number: None

PATIENT
  Age: 65 Year
  Sex: Male

DRUGS (2)
  1. APIXABAN [Suspect]
     Active Substance: APIXABAN
  2. aixaban [Concomitant]

REACTIONS (2)
  - Cerebral haemorrhage [None]
  - Haemorrhagic stroke [None]

NARRATIVE: CASE EVENT DATE: 20240610
